FAERS Safety Report 5921933-0 (Version None)
Quarter: 2008Q4

REPORT INFORMATION
  Report Type: 
  Country: None (occurrence: None)
  Receive Date: 20081017
  Receipt Date: 20081013
  Transmission Date: 20090506
  Serious: Yes (Other)
  Sender: FDA-Public Use
  Company Number: US-JNJFOC-20081003483

PATIENT
  Age: 74 Year
  Sex: Female
  Weight: 72.58 kg

DRUGS (6)
  1. TYLENOL (CAPLET) [Suspect]
     Route: 048
  2. TYLENOL (CAPLET) [Suspect]
     Indication: ARTHRALGIA
     Route: 048
  3. ZETIA [Concomitant]
  4. METOPROLOL TARTRATE [Concomitant]
  5. CRESTOR [Concomitant]
  6. TRIAMTERENE AND HYDROCHLOROTHIAZIDE [Concomitant]
     Dosage: 37.5 / 25MG, ONCE DAILY

REACTIONS (1)
  - RECTAL HAEMORRHAGE [None]
